FAERS Safety Report 7077726-7 (Version None)
Quarter: 2010Q4

REPORT INFORMATION
  Report Type: 
  Country: None (occurrence: None)
  Receive Date: 20101101
  Receipt Date: 20101026
  Transmission Date: 20110411
  Serious: Yes (Death, Other)
  Sender: FDA-Public Use
  Company Number: IN-BAXTER-2010BH025450

PATIENT
  Age: 22 Month
  Sex: Male

DRUGS (1)
  1. DIANEAL [Suspect]
     Indication: PERITONEAL DIALYSIS
     Route: 033
     Dates: start: 20101008, end: 20101015

REACTIONS (3)
  - DEATH [None]
  - PERITONEAL DIALYSIS COMPLICATION [None]
  - PERITONITIS [None]
